FAERS Safety Report 7095674-3 (Version None)
Quarter: 2010Q4

REPORT INFORMATION
  Report Type: 
  Country: None (occurrence: None)
  Receive Date: 20101111
  Receipt Date: 20090104
  Transmission Date: 20110411
  Serious: No
  Sender: FDA-Public Use
  Company Number: US-KINGPHARMUSA00001-K200900008

PATIENT
  Sex: Male
  Weight: 71.202 kg

DRUGS (4)
  1. SKELAXIN [Suspect]
     Dosage: 800 MG, UNK
     Route: 048
     Dates: start: 20090101, end: 20090101
  2. MUCINEX D [Concomitant]
  3. PREVACID [Concomitant]
  4. OTHER ANTIHYPERTENSIVES [Concomitant]

REACTIONS (1)
  - HAEMATOCHEZIA [None]
